FAERS Safety Report 4908166-1 (Version None)
Quarter: 2006Q1

REPORT INFORMATION
  Report Type: 
  Country: None (occurrence: None)
  Receive Date: 20060210
  Receipt Date: 20050930
  Transmission Date: 20060701
  Serious: Yes (Hospitalization, Disabling, Other)
  Sender: FDA-Public Use
  Company Number: US-MERCK-0510USA01249

PATIENT
  Age: 58 Year
  Sex: Male
  Weight: 104 kg

DRUGS (1)
  1. VIOXX [Suspect]
     Indication: ARTHROPATHY
     Route: 048
     Dates: end: 20040901

REACTIONS (7)
  - ANGINA PECTORIS [None]
  - ARRHYTHMIA [None]
  - ARTHROPATHY [None]
  - CHEST PAIN [None]
  - CORONARY ARTERY DISEASE [None]
  - MYOCARDIAL INFARCTION [None]
  - NEOPLASM MALIGNANT [None]
